FAERS Safety Report 4912384-6 (Version None)
Quarter: 2006Q1

REPORT INFORMATION
  Report Type: 
  Country: None (occurrence: None)
  Receive Date: 20060215
  Receipt Date: 20050209
  Transmission Date: 20060701
  Serious: No
  Sender: FDA-Public Use
  Company Number: US-GLAXOSMITHKLINE-A0544788A

PATIENT
  Age: 70 Year
  Sex: Female

DRUGS (6)
  1. VALTREX [Suspect]
     Dosage: 500MG PER DAY
     Route: 048
  2. COZAAR [Concomitant]
  3. CALAN [Concomitant]
  4. PEPCID [Concomitant]
  5. ARIMIDEX [Concomitant]
  6. ASPIRIN [Concomitant]

REACTIONS (1)
  - SHOULDER PAIN [None]
